FAERS Safety Report 4524475-2 (Version None)
Quarter: 2004Q4

REPORT INFORMATION
  Report Type: 
  Country: None (occurrence: None)
  Receive Date: 20041117
  Receipt Date: 20040210
  Transmission Date: 20050328
  Serious: Yes (Hospitalization)
  Sender: FDA-Public Use
  Company Number: US-JNJFOC-20030906306

PATIENT
  Age: 13 Year
  Sex: Male
  Weight: 44.4525 kg

DRUGS (4)
  1. LEVAQUIN [Suspect]
     Indication: SINUSITIS
     Dosage: 500 MG, 1 IN 1 DAY
     Dates: start: 20030909, end: 20030915
  2. SINGULAIR [Suspect]
     Indication: RHINITIS ALLERGIC
     Dosage: 10 MG, 1 IN 1 DAY
     Dates: start: 20030913
  3. PREVACID [Concomitant]
  4. CLINDAMYCIN (CLINDAMYCIN) [Concomitant]

REACTIONS (4)
  - CHROMATOPSIA [None]
  - CRYING [None]
  - FEELING HOT AND COLD [None]
  - HALLUCINATION [None]
